FAERS Safety Report 6204103-0 (Version None)
Quarter: 2009Q2

REPORT INFORMATION
  Report Type: 
  Country: None (occurrence: None)
  Receive Date: 20090527
  Receipt Date: 20051214
  Transmission Date: 20091009
  Serious: Yes (Hospitalization)
  Sender: FDA-Public Use
  Company Number: CA-PFIZER INC-2004239564US

PATIENT
  Age: 53 Year

DRUGS (5)
  1. CELECOXIB [Suspect]
     Indication: NEOPLASM PROPHYLAXIS
     Dosage: 200 MG, 2X/DAY
     Route: 048
     Dates: start: 20020225, end: 20041217
  2. MULTI-VITAMINS [Concomitant]
     Route: 048
     Dates: start: 20010401
  3. NU-METFORMIN [Concomitant]
     Route: 048
     Dates: start: 20021210
  4. DIAMICRON [Concomitant]
     Route: 048
     Dates: start: 20021210
  5. TEGRETOL [Concomitant]
     Route: 048
     Dates: start: 20020511

REACTIONS (2)
  - FALL [None]
  - MULTIPLE FRACTURES [None]
